FAERS Safety Report 22288286 (Version 1)
Quarter: 2023Q2

REPORT INFORMATION
  Report Type: Spontaneous
  Country: US (occurrence: US)
  Receive Date: 20230505
  Receipt Date: 20230505
  Transmission Date: 20230722
  Serious: Yes (Other)
  Sender: FDA-Public Use
  Company Number: US-MYLANLABS-2023M1046871

PATIENT
  Age: 19 Year
  Sex: Female

DRUGS (3)
  1. ACETAZOLAMIDE [Suspect]
     Active Substance: ACETAZOLAMIDE
     Indication: Papilloedema
     Dosage: 1 GRAM, BID
     Route: 065
  2. ACETAZOLAMIDE [Suspect]
     Active Substance: ACETAZOLAMIDE
     Indication: Intracranial pressure increased
  3. TESTOSTERONE [Concomitant]
     Active Substance: TESTOSTERONE
     Indication: Transgender hormonal therapy
     Dosage: 0.25 MILLIGRAM, QW
     Route: 030

REACTIONS (1)
  - Drug ineffective [Unknown]
